FAERS Safety Report 8512006-1 (Version None)
Quarter: 2012Q3

REPORT INFORMATION
  Report Type: 
  Country: None (occurrence: None)
  Receive Date: 20120716
  Receipt Date: 20120711
  Transmission Date: 20120928
  Serious: Yes (Other)
  Sender: FDA-Public Use
  Company Number: PHHY2012PL060480

PATIENT
  Age: 31 Year
  Sex: Male

DRUGS (5)
  1. BASILIXIMAB [Concomitant]
  2. GLUCOCORTICOIDS [Concomitant]
  3. MYFORTIC [Suspect]
     Indication: RENAL TRANSPLANT
  4. OMEPRAZOLE [Concomitant]
     Dosage: 20 MG, UNK
  5. TACROLIMUS [Concomitant]

REACTIONS (2)
  - PERIRENAL HAEMATOMA [None]
  - URINARY FISTULA [None]
